FAERS Safety Report 10758506 (Version 1)
Quarter: 2015Q1

REPORT INFORMATION
  Report Type: Spontaneous
  Country: US (occurrence: None)
  Receive Date: 20150202
  Receipt Date: 20150202
  Transmission Date: 20150721
  Serious: Yes (Life-Threatening, Hospitalization)
  Sender: FDA-Public Use
  Company Number: None

PATIENT
  Age: 56 Year
  Sex: Male
  Weight: 77.5 kg

DRUGS (1)
  1. LENALIDOMIDE [Suspect]
     Active Substance: LENALIDOMIDE
     Indication: PLASMA CELL MYELOMA
     Dosage: MG
     Route: 048
     Dates: start: 20141212, end: 20150101

REACTIONS (17)
  - Deep vein thrombosis [None]
  - Thrombosis [None]
  - Septic shock [None]
  - Jugular vein thrombosis [None]
  - Tachycardia [None]
  - Dehydration [None]
  - Plasma cell myeloma [None]
  - Dizziness [None]
  - Dysphagia [None]
  - Edentulous [None]
  - Vomiting [None]
  - Lobar pneumonia [None]
  - Pain [None]
  - Nausea [None]
  - Pulmonary embolism [None]
  - Metastases to bone [None]
  - Food intolerance [None]

NARRATIVE: CASE EVENT DATE: 20150107
